FAERS Safety Report 9373285 (Version 1)
Quarter: 2013Q2

REPORT INFORMATION
  Report Type: Spontaneous
  Country: US (occurrence: US)
  Receive Date: 20130627
  Receipt Date: 20130627
  Transmission Date: 20140414
  Serious: Yes (Other)
  Sender: FDA-Public Use
  Company Number: US-GLAXOSMITHKLINE-A1028468A

PATIENT
  Age: 46 Year
  Sex: Male

DRUGS (5)
  1. LAMICTAL [Suspect]
     Indication: CONVULSION
     Dosage: 250MG PER DAY
     Route: 048
     Dates: start: 201104
  2. LISINOPRIL [Concomitant]
  3. COUMADIN [Concomitant]
  4. DICLOXACILLIN [Concomitant]
  5. SIMVASTATIN [Concomitant]

REACTIONS (2)
  - Convulsion [Not Recovered/Not Resolved]
  - Anticonvulsant drug level decreased [Not Recovered/Not Resolved]
